FAERS Safety Report 6385171-2 (Version None)
Quarter: 2009Q4

REPORT INFORMATION
  Report Type: 
  Country: None (occurrence: None)
  Receive Date: 20091002
  Receipt Date: 20081003
  Transmission Date: 20100525
  Serious: No
  Sender: FDA-Public Use
  Company Number: US-ASTRAZENECA-2006UW26942

PATIENT
  Age: 85 Year
  Sex: Female

DRUGS (4)
  1. ARIMIDEX [Suspect]
     Indication: BREAST CANCER
     Route: 048
     Dates: start: 20050101
  2. ASPIRIN [Concomitant]
     Route: 048
  3. FOSINOPRIL SODIUM [Concomitant]
     Route: 048
  4. DOXAZOSIN MESYLATE [Concomitant]
     Route: 048

REACTIONS (6)
  - BACK PAIN [None]
  - HAND DEFORMITY [None]
  - HERPES ZOSTER [None]
  - HYPOAESTHESIA [None]
  - NERVE INJURY [None]
  - PAIN [None]
